FAERS Safety Report 10309052 (Version 2)
Quarter: 2014Q3

REPORT INFORMATION
  Report Type: Report from Study
  Country: KR (occurrence: KR)
  Receive Date: 20140716
  Receipt Date: 20140730
  Transmission Date: 20150326
  Serious: Yes (Death, Hospitalization)
  Sender: FDA-Public Use
  Company Number: KR-OTSUKA-JP-2014-15254

PATIENT
  Age: 86 Year
  Sex: Female

DRUGS (9)
  1. NIMOTOP [Concomitant]
     Active Substance: NIMODIPINE
     Dosage: UNK
     Route: 042
     Dates: start: 20080129
  2. BLINDED ASPIRIN [Suspect]
     Active Substance: ASPIRIN
     Indication: CEREBRAL INFARCTION
     Dosage: UNK
     Route: 048
     Dates: start: 20110128, end: 20120814
  3. BLINDED PROBUCOL [Suspect]
     Active Substance: PROBUCOL
     Indication: CEREBRAL INFARCTION
     Dosage: UNK
     Route: 048
     Dates: start: 20110128, end: 20120814
  4. CARBAMAZEPINE. [Concomitant]
     Active Substance: CARBAMAZEPINE
     Dosage: UNK
     Dates: start: 2002
  5. BLINDED CILOSTAZOL [Suspect]
     Active Substance: CILOSTAZOL
     Indication: CEREBRAL INFARCTION
     Dosage: UNK
     Route: 048
     Dates: start: 20110128, end: 20120814
  6. PLACEBO [Suspect]
     Active Substance: UNSPECIFIED INGREDIENT
     Indication: CEREBRAL INFARCTION
     Dosage: UNK
     Route: 048
     Dates: start: 20110128, end: 20120814
  7. MAGO [Concomitant]
     Dosage: UNK
     Dates: start: 2002
  8. SENSIVAL [Concomitant]
     Dosage: UNK
     Dates: start: 20040210
  9. TRIAPIN [Concomitant]
     Dosage: UNK
     Dates: start: 20080129

REACTIONS (3)
  - Subarachnoid haemorrhage [Fatal]
  - Cerebral haemorrhage [Fatal]
  - Intraventricular haemorrhage [Fatal]

NARRATIVE: CASE EVENT DATE: 20120814
